FAERS Safety Report 11211210 (Version 3)
Quarter: 2015Q4

REPORT INFORMATION
  Report Type: Spontaneous
  Country: PL (occurrence: PL)
  Receive Date: 20150623
  Receipt Date: 20151002
  Transmission Date: 20160304
  Serious: Yes (Congenital Anomaly)
  Sender: FDA-Public Use
  Company Number: PL-ROCHE-1594279

PATIENT
  Age: 2 Year
  Sex: Male

DRUGS (1)
  1. HERCEPTIN [Suspect]
     Active Substance: TRASTUZUMAB
     Indication: PRODUCT USED FOR UNKNOWN INDICATION
     Route: 064
     Dates: start: 20120104, end: 20120711

REACTIONS (2)
  - Congenital ureteric anomaly [Unknown]
  - Foetal exposure during pregnancy [Unknown]
